FAERS Safety Report 10037958 (Version 1)
Quarter: 2014Q1

REPORT INFORMATION
  Report Type: Spontaneous
  Country: GB (occurrence: None)
  Receive Date: 20140321
  Receipt Date: 20140321
  Transmission Date: 20141002
  Serious: Yes (Life-Threatening, Hospitalization)
  Sender: FDA-Public Use
  Company Number: GB-LHC-2014016

PATIENT
  Age: 69 Year
  Sex: Male

DRUGS (1)
  1. OXYGEN [Suspect]
     Indication: DYSPNOEA
     Dosage: 2-4 HOURS PER DAY, INHALATION
     Route: 055
     Dates: start: 20140303

REACTIONS (3)
  - Respiratory failure [None]
  - Somnolence [None]
  - Wrong technique in drug usage process [None]
